FAERS Safety Report 6248581-X (Version None)
Quarter: 2009Q2

REPORT INFORMATION
  Report Type: 
  Country: None (occurrence: None)
  Receive Date: 20090624
  Receipt Date: 20090624
  Transmission Date: 20091009
  Serious: Yes (Life-Threatening)
  Sender: FDA-Public Use
  Company Number: None

PATIENT
  Age: 65 Year
  Sex: Male
  Weight: 82 kg

DRUGS (6)
  1. HEPARIN [Suspect]
     Indication: DEEP VEIN THROMBOSIS
     Dosage: 1300 UNITS/HR IV
     Route: 042
     Dates: start: 20090414, end: 20090417
  2. DEXAMETHASONE [Concomitant]
  3. RANITIDINE [Concomitant]
  4. LEVOTHYROXINE SODIUM [Concomitant]
  5. CEFEPIME [Concomitant]
  6. VANCOMYCIN [Concomitant]

REACTIONS (4)
  - ACTIVATED PARTIAL THROMBOPLASTIN TIME PROLONGED [None]
  - HAEMOPTYSIS [None]
  - HYPOTENSION [None]
  - MELAENA [None]
